FAERS Safety Report 11068875 (Version 1)
Quarter: 2015Q2

REPORT INFORMATION
  Report Type: Spontaneous
  Country: US (occurrence: None)
  Receive Date: 20150424
  Receipt Date: 20150424
  Transmission Date: 20150821
  Serious: Yes (Other)
  Sender: FDA-Public Use
  Company Number: None

PATIENT
  Age: 76 Year
  Sex: Female

DRUGS (1)
  1. HUMIRA [Suspect]
     Active Substance: ADALIMUMAB
     Indication: RHEUMATOID ARTHRITIS
     Dosage: 40 MG INJECTABLE EVERY 2 WEEKS
     Dates: start: 20150122

REACTIONS (3)
  - Pharyngeal oedema [None]
  - Cough [None]
  - Joint swelling [None]

NARRATIVE: CASE EVENT DATE: 20150122
